FAERS Safety Report 8429984-1 (Version None)
Quarter: 2012Q2

REPORT INFORMATION
  Report Type: 
  Country: None (occurrence: None)
  Receive Date: 20120612
  Receipt Date: 20120605
  Transmission Date: 20120825
  Serious: Yes (Hospitalization)
  Sender: FDA-Public Use
  Company Number: CA-B.I. PHARMACEUTICALS,INC./RIDGEFIELD-2012-CN-01176CN

PATIENT
  Age: 67 Year
  Sex: Female

DRUGS (4)
  1. SLOW-K [Concomitant]
  2. PRADAXA [Suspect]
     Indication: ATRIAL FIBRILLATION
     Dosage: 220 MG
     Route: 048
     Dates: start: 20100101
  3. HEART PILLS [Concomitant]
     Indication: CARDIAC FAILURE CONGESTIVE
  4. WATER PILLS [Concomitant]
     Indication: CARDIAC FAILURE CONGESTIVE

REACTIONS (4)
  - PNEUMONIA [None]
  - ASTHENIA [None]
  - CONTUSION [None]
  - COMA [None]
